FAERS Safety Report 20134845 (Version 1)
Quarter: 2021Q4

REPORT INFORMATION
  Report Type: Spontaneous
  Country: US (occurrence: None)
  Receive Date: 20211201
  Receipt Date: 20211201
  Transmission Date: 20220303
  Serious: Yes (Other)
  Sender: FDA-Public Use
  Company Number: US-Hikma Pharmaceuticals USA Inc.-US-H14001-21-05092

PATIENT
  Age: 32 Year
  Sex: Male
  Weight: 88 kg

DRUGS (7)
  1. DEXMEDETOMIDINE [Suspect]
     Active Substance: DEXMEDETOMIDINE
     Indication: Wean from ventilator
     Dosage: INITIATED AT 0.2 MCG/KG/HR AND UP-TITRATED TO 0.8 MCG/KG/HR
     Route: 065
  2. DEXMEDETOMIDINE [Suspect]
     Active Substance: DEXMEDETOMIDINE
     Indication: Sedation
  3. UNSPECIFIED INGREDIENT [Concomitant]
     Active Substance: UNSPECIFIED INGREDIENT
     Indication: Pseudomonas infection
     Dosage: UNKNOWN
     Route: 065
  4. UNSPECIFIED INGREDIENT [Concomitant]
     Active Substance: UNSPECIFIED INGREDIENT
     Indication: Septic shock
  5. FENTANYL [Concomitant]
     Active Substance: FENTANYL
     Indication: Sedation
     Dosage: UNKNOWN
     Route: 065
  6. VASOPRESSIN [Concomitant]
     Active Substance: VASOPRESSIN
     Indication: Septic shock
     Dosage: UNKNOWN
     Route: 065
  7. VASOPRESSIN [Concomitant]
     Active Substance: VASOPRESSIN
     Indication: Pseudomonas infection
     Dosage: 0.02 UNITS/MIN
     Route: 065

REACTIONS (4)
  - Diabetes insipidus [Recovering/Resolving]
  - Polyuria [Recovering/Resolving]
  - Torsade de pointes [Recovered/Resolved]
  - Electrolyte imbalance [Recovered/Resolved]
